FAERS Safety Report 10464541 (Version 1)
Quarter: 2014Q3

REPORT INFORMATION
  Report Type: Spontaneous
  Country: FR (occurrence: None)
  Receive Date: 20140917
  Receipt Date: 20140917
  Transmission Date: 20150326
  Serious: Yes (Hospitalization)
  Sender: FDA-Public Use
  Company Number: 2528238

PATIENT
  Sex: Male

DRUGS (3)
  1. LEUCOVORIN /00566701/ ? [Concomitant]
  2. OXALIPLATIN. [Suspect]
     Active Substance: OXALIPLATIN
     Indication: HEPATOCELLULAR CARCINOMA
     Route: 033
  3. 5-FLUOROURACIL /00098801/ [Suspect]
     Active Substance: FLUOROURACIL
     Indication: HEPATOCELLULAR CARCINOMA
     Dosage: 400 MG/M 2 MILLIGRAM, /SQ.METER
     Route: 041

REACTIONS (3)
  - Compartment syndrome [None]
  - Peritoneal haemorrhage [None]
  - Drug interaction [None]
